FAERS Safety Report 13133432 (Version 1)
Quarter: 2017Q1

REPORT INFORMATION
  Report Type: Spontaneous
  Country: BR (occurrence: BR)
  Receive Date: 20170120
  Receipt Date: 20170120
  Transmission Date: 20170428
  Serious: Yes (Other)
  Sender: FDA-Public Use
  Company Number: BR-009507513-1701BRA006637

PATIENT
  Sex: Male
  Weight: 67 kg

DRUGS (2)
  1. FINASTERIDE. [Suspect]
     Active Substance: FINASTERIDE
     Indication: BENIGN PROSTATIC HYPERPLASIA
     Dosage: 1 TABLET, QD
     Route: 048
     Dates: start: 2007
  2. LORAX (LORAZEPAM) [Concomitant]
     Indication: INSOMNIA
     Dosage: 2 MG, 1 TABLET, QD
     Route: 048
     Dates: start: 1997

REACTIONS (2)
  - Hypertension [Not Recovered/Not Resolved]
  - Hepatitis C [Not Recovered/Not Resolved]
